FAERS Safety Report 10852208 (Version 1)
Quarter: 2015Q1

REPORT INFORMATION
  Report Type: Spontaneous
  Country: HK (occurrence: HK)
  Receive Date: 20150222
  Receipt Date: 20150222
  Transmission Date: 20150721
  Serious: Yes (Other)
  Sender: FDA-Public Use
  Company Number: HK-BRISTOL-MYERS SQUIBB COMPANY-BMS-2014-003454

PATIENT
  Sex: Male

DRUGS (3)
  1. LIPITOR [Concomitant]
     Active Substance: ATORVASTATIN CALCIUM
     Indication: PRODUCT USED FOR UNKNOWN INDICATION
     Route: 065
  2. BARACLUDE [Suspect]
     Active Substance: ENTECAVIR
     Indication: HEPATITIS B
     Dosage: 0.5 MG, UNK
     Route: 048
     Dates: start: 2006, end: 201410
  3. ASPIRIN                            /00002701/ [Concomitant]
     Active Substance: ASPIRIN
     Indication: PRODUCT USED FOR UNKNOWN INDICATION
     Dosage: UNK
     Route: 065

REACTIONS (7)
  - Nausea [Unknown]
  - Diabetes mellitus [Unknown]
  - Skin discolouration [Recovered/Resolved]
  - Haemorrhoidal haemorrhage [Unknown]
  - Abdominal distension [Unknown]
  - Fatigue [Unknown]
  - Herpes zoster [Unknown]

NARRATIVE: CASE EVENT DATE: 2010
